FAERS Safety Report 12287631 (Version 1)
Quarter: 2016Q2

REPORT INFORMATION
  Report Type: Report from Study
  Country: BR (occurrence: BR)
  Receive Date: 20160420
  Receipt Date: 20160420
  Transmission Date: 20160815
  Serious: Yes (Other)
  Sender: FDA-Public Use
  Company Number: PHHY2014BR110776

PATIENT
  Sex: Male
  Weight: 80 kg

DRUGS (1)
  1. SANDOSTATIN LAR DEPOT [Suspect]
     Active Substance: OCTREOTIDE ACETATE
     Indication: ACROMEGALY
     Dosage: 40 MG, QMO, (2 AMPOULES OF 20 MG), ONCE A MONTH
     Route: 030

REACTIONS (5)
  - Influenza [Recovering/Resolving]
  - Apathy [Unknown]
  - Dengue fever [Recovering/Resolving]
  - Decreased immune responsiveness [Unknown]
  - Hypertension [Unknown]
